FAERS Safety Report 6517368-2 (Version None)
Quarter: 2009Q4

REPORT INFORMATION
  Report Type: 
  Country: None (occurrence: None)
  Receive Date: 20091218
  Receipt Date: 20091207
  Transmission Date: 20100525
  Serious: Yes (Hospitalization)
  Sender: FDA-Public Use
  Company Number: 233057J09USA

PATIENT
  Age: 48 Year
  Sex: Male
  Weight: 66 kg

DRUGS (3)
  1. REBIF [Suspect]
     Indication: MULTIPLE SCLEROSIS
     Dosage: 44 MCG, 3 IN 1 WEEKS, SUBCUTANEOUS
     Route: 058
     Dates: start: 20081124
  2. BACLOFEN [Concomitant]
  3. ANTI-ANXIETY MEDICATION (ANXIOLYTICS) [Concomitant]

REACTIONS (3)
  - COLITIS [None]
  - MUSCULAR WEAKNESS [None]
  - RENAL MASS [None]
